FAERS Safety Report 24323146 (Version 2)
Quarter: 2024Q3

REPORT INFORMATION
  Report Type: Report from Study
  Country: CA (occurrence: CA)
  Receive Date: 20240916
  Receipt Date: 20240926
  Transmission Date: 20241017
  Serious: Yes (Hospitalization, Other)
  Sender: GILEAD
  Company Number: CA-GILEAD-2024-0687718

PATIENT
  Sex: Male

DRUGS (1)
  1. SOFOSBUVIR\VELPATASVIR [Suspect]
     Active Substance: SOFOSBUVIR\VELPATASVIR
     Indication: Hepatitis C
     Dosage: 400MG/100MG - 1 TABLET ONCE DAILY
     Route: 065
     Dates: start: 20240815

REACTIONS (6)
  - Pyrexia [Recovered/Resolved]
  - Hallucination [Recovering/Resolving]
  - Respiratory tract infection [Recovering/Resolving]
  - Feeding disorder [Recovering/Resolving]
  - Oropharyngeal pain [Not Recovered/Not Resolved]
  - Headache [Not Recovered/Not Resolved]

NARRATIVE: CASE EVENT DATE: 20240101
